FAERS Safety Report 8666463 (Version 2)
Quarter: 2012Q4

REPORT INFORMATION
  Report Type: Report from Study
  Country: JP (occurrence: JP)
  Receive Date: 20120716
  Receipt Date: 20121004
  Transmission Date: 20130627
  Serious: No
  Sender: FDA-Public Use
  Company Number: JP-GLAXOSMITHKLINE-B0814530A

PATIENT
  Age: 77 Year
  Sex: Male

DRUGS (7)
  1. REVOLADE [Suspect]
     Indication: IDIOPATHIC THROMBOCYTOPENIC PURPURA
     Route: 048
     Dates: start: 20111017, end: 20111027
  2. REVOLADE [Suspect]
     Indication: IDIOPATHIC THROMBOCYTOPENIC PURPURA
     Route: 048
     Dates: start: 20111028, end: 20111204
  3. REVOLADE [Suspect]
     Indication: IDIOPATHIC THROMBOCYTOPENIC PURPURA
     Route: 048
     Dates: start: 20111205, end: 20120122
  4. REVOLADE [Suspect]
     Indication: IDIOPATHIC THROMBOCYTOPENIC PURPURA
     Route: 048
     Dates: start: 20120123
  5. URSO [Concomitant]
     Route: 048
  6. ZYLORIC [Concomitant]
     Route: 048
  7. FUROSEMIDE [Concomitant]
     Route: 048
     Dates: start: 20120206

REACTIONS (1)
  - Haemoglobin decreased [Not Recovered/Not Resolved]
